FAERS Safety Report 8491873-4 (Version None)
Quarter: 2012Q3

REPORT INFORMATION
  Report Type: 
  Country: None (occurrence: None)
  Receive Date: 20120706
  Receipt Date: 20110913
  Transmission Date: 20120928
  Serious: No
  Sender: FDA-Public Use
  Company Number: US-GLAXOSMITHKLINE-A0944474A

PATIENT
  Age: 64 Year
  Sex: Female

DRUGS (4)
  1. FLOVENT [Suspect]
     Indication: ASTHMA
     Dosage: 2PUFF TWICE PER DAY
     Route: 055
     Dates: start: 20100524, end: 20110201
  2. PEPCID AC [Concomitant]
  3. SYNTHROID [Concomitant]
  4. LORAZEPAM [Concomitant]

REACTIONS (2)
  - AGITATION [None]
  - PALPITATIONS [None]
